FAERS Safety Report 20894723 (Version 1)
Quarter: 2022Q2

REPORT INFORMATION
  Report Type: Spontaneous
  Country: US (occurrence: None)
  Receive Date: 20220527
  Receipt Date: 20220527
  Transmission Date: 20220721
  Serious: Yes (Hospitalization)
  Sender: FDA-Public Use
  Company Number: None

PATIENT
  Age: 35 Year
  Sex: Female
  Weight: 144.45 kg

DRUGS (16)
  1. CLINDAMYCIN [Suspect]
     Active Substance: CLINDAMYCIN
     Indication: Cat scratch disease
     Dosage: FREQUENCY : EVERY 6 HOURS;?
     Route: 048
     Dates: start: 20220523
  2. MORPHINE SULFATE [Concomitant]
     Active Substance: MORPHINE SULFATE
  3. POTASSIUM [Concomitant]
     Active Substance: POTASSIUM
  4. BUMETANIDE [Concomitant]
     Active Substance: BUMETANIDE
  5. MORPHINE [Concomitant]
     Active Substance: MORPHINE
  6. TRIMETHOBENZAMIDE [Concomitant]
     Active Substance: TRIMETHOBENZAMIDE
  7. AMIODARONE [Concomitant]
     Active Substance: AMIODARONE
  8. SPIRONOLACTONE [Concomitant]
     Active Substance: SPIRONOLACTONE
  9. VENLAFAXINE [Concomitant]
     Active Substance: VENLAFAXINE HYDROCHLORIDE
  10. DOBUTAMINE [Concomitant]
     Active Substance: DOBUTAMINE HYDROCHLORIDE
  11. MAGNESIUM [Concomitant]
     Active Substance: MAGNESIUM
  12. TRAZODONE [Concomitant]
     Active Substance: TRAZODONE HYDROCHLORIDE
  13. ALBUTEROL [Concomitant]
     Active Substance: ALBUTEROL
  14. FAMOTIDINE [Concomitant]
     Active Substance: FAMOTIDINE
  15. DOCUSATE [Concomitant]
     Active Substance: DOCUSATE
  16. VITAMIN D [Concomitant]
     Active Substance: VITAMIN D NOS

REACTIONS (2)
  - Dyspepsia [None]
  - Chest pain [None]

NARRATIVE: CASE EVENT DATE: 20220526
